FAERS Safety Report 21572053 (Version 1)
Quarter: 2022Q4

REPORT INFORMATION
  Report Type: Spontaneous
  Country: US (occurrence: None)
  Receive Date: 20221108
  Receipt Date: 20221108
  Transmission Date: 20230113
  Serious: Yes (Death)
  Sender: FDA-Public Use
  Company Number: None

PATIENT
  Sex: Male

DRUGS (5)
  1. COTELLIC [Suspect]
     Active Substance: COBIMETINIB
     Indication: Malignant melanoma
     Route: 048
     Dates: start: 20220802
  2. ALLOPURINOL [Concomitant]
  3. LOSARTAN PQT [Concomitant]
  4. OXYGEN TAB [Concomitant]
  5. ZELBORAF [Concomitant]
     Active Substance: VEMURAFENIB

REACTIONS (1)
  - Death [None]
